FAERS Safety Report 26211329 (Version 1)
Quarter: 2025Q4

REPORT INFORMATION
  Report Type: Report from Study
  Country: CN (occurrence: CN)
  Receive Date: 20251230
  Receipt Date: 20251230
  Transmission Date: 20260117
  Serious: Yes (Other)
  Sender: ROCHE
  Company Number: CN-ROCHE-10000161912

PATIENT
  Age: 55 Year
  Sex: Female
  Weight: 45 kg

DRUGS (41)
  1. POLATUZUMAB VEDOTIN [Suspect]
     Active Substance: POLATUZUMAB VEDOTIN
     Indication: Diffuse large B-cell lymphoma
     Dosage: FREQUENCY: OTHER
     Route: 041
  2. POLATUZUMAB VEDOTIN [Suspect]
     Active Substance: POLATUZUMAB VEDOTIN
     Dosage: FREQUENCY: OTHER
     Route: 041
  3. POLATUZUMAB VEDOTIN [Suspect]
     Active Substance: POLATUZUMAB VEDOTIN
     Dosage: SUBSEQUENT DOSEON:11-OCT-2024
     Route: 041
  4. RITUXIMAB [Suspect]
     Active Substance: RITUXIMAB
     Indication: Diffuse large B-cell lymphoma
     Dosage: FREQUENCY: OTHER
     Route: 041
  5. RITUXIMAB [Suspect]
     Active Substance: RITUXIMAB
     Route: 041
  6. ZUBERITAMAB [Suspect]
     Active Substance: ZUBERITAMAB
     Indication: Diffuse large B-cell lymphoma
     Dosage: FREQUENCY: OTHER
     Route: 041
  7. ZUBERITAMAB [Suspect]
     Active Substance: ZUBERITAMAB
     Dosage: FREQUENCY: OTHER
     Route: 041
  8. CYCLOPHOSPHAMIDE [Suspect]
     Active Substance: CYCLOPHOSPHAMIDE
     Indication: Diffuse large B-cell lymphoma
     Dosage: FREQUENCY:OTHER
     Route: 041
  9. CYCLOPHOSPHAMIDE [Suspect]
     Active Substance: CYCLOPHOSPHAMIDE
     Route: 041
  10. CYCLOPHOSPHAMIDE [Suspect]
     Active Substance: CYCLOPHOSPHAMIDE
     Route: 041
  11. DOXORUBICIN HYDROCHLORIDE [Suspect]
     Active Substance: DOXORUBICIN HYDROCHLORIDE
     Indication: Diffuse large B-cell lymphoma
     Route: 041
  12. DOXORUBICIN HYDROCHLORIDE [Suspect]
     Active Substance: DOXORUBICIN HYDROCHLORIDE
     Route: 041
  13. DOXORUBICIN HYDROCHLORIDE [Suspect]
     Active Substance: DOXORUBICIN HYDROCHLORIDE
     Route: 041
  14. PREDNISONE [Suspect]
     Active Substance: PREDNISONE
     Indication: Diffuse large B-cell lymphoma
     Route: 048
  15. PREDNISONE [Suspect]
     Active Substance: PREDNISONE
     Route: 048
     Dates: start: 20241129, end: 20241204
  16. PREDNISONE [Suspect]
     Active Substance: PREDNISONE
     Route: 048
     Dates: start: 20240920, end: 20240925
  17. Rabeprazole Sodium for injection [Concomitant]
     Route: 048
     Dates: start: 20240914, end: 202502
  18. FEBUXOSTAT [Concomitant]
     Active Substance: FEBUXOSTAT
     Route: 048
     Dates: start: 20240914
  19. ENTECAVIR [Concomitant]
     Active Substance: ENTECAVIR
     Route: 048
     Dates: start: 20240917
  20. Almagate Suspension [Concomitant]
     Route: 048
     Dates: start: 20240919, end: 202502
  21. PROMETHAZINE [Concomitant]
     Active Substance: PROMETHAZINE HYDROCHLORIDE
     Route: 030
     Dates: start: 20240919, end: 202501
  22. DEXAMETHASONE SODIUM PHOSPHATE [Concomitant]
     Active Substance: DEXAMETHASONE SODIUM PHOSPHATE
     Route: 041
     Dates: start: 20240919, end: 202501
  23. DEXAMETHASONE SODIUM PHOSPHATE [Concomitant]
     Active Substance: DEXAMETHASONE SODIUM PHOSPHATE
     Route: 041
     Dates: start: 20250103, end: 20250103
  24. Netupitant and Palonosetron Hydrochloride Capsules [Concomitant]
     Route: 048
     Dates: start: 20240920, end: 202502
  25. Silymarin Capsules [Concomitant]
     Route: 048
     Dates: start: 20240921, end: 20241216
  26. Silymarin Capsules [Concomitant]
     Route: 048
     Dates: start: 20241217, end: 20250306
  27. Diammonium Glycyrrhizinate Enteric-coated Capsules [Concomitant]
     Route: 048
     Dates: start: 20240921, end: 20241216
  28. Diammonium Glycyrrhizinate Enteric-coated Capsules [Concomitant]
     Route: 048
     Dates: start: 20241217, end: 20250306
  29. METHOTREXATE [Concomitant]
     Active Substance: METHOTREXATE
     Route: 041
  30. METHOTREXATE [Concomitant]
     Active Substance: METHOTREXATE
     Route: 037
     Dates: start: 20250103, end: 20250103
  31. CYTARABINE [Concomitant]
     Active Substance: CYTARABINE
     Dates: start: 20241106, end: 20241106
  32. CYTARABINE [Concomitant]
     Active Substance: CYTARABINE
     Route: 037
  33. laprazole Enteric-Coated Tablets [Concomitant]
     Route: 048
     Dates: start: 20241106, end: 20241216
  34. MESNA [Concomitant]
     Active Substance: MESNA
     Route: 041
     Dates: start: 20240919, end: 20241129
  35. MESNA [Concomitant]
     Active Substance: MESNA
     Route: 041
     Dates: start: 20250103, end: 20250103
  36. PEGylated Recombinant Human Granulocyte Colony [Concomitant]
     Route: 058
     Dates: start: 20250124, end: 202501
  37. CALCIUM ACETATE [Concomitant]
     Active Substance: CALCIUM ACETATE
     Route: 048
     Dates: start: 202412
  38. ILAPRAZOLE [Concomitant]
     Active Substance: ILAPRAZOLE
     Route: 048
     Dates: start: 20241217
  39. SULFAMETHOXAZOLE [Concomitant]
     Active Substance: SULFAMETHOXAZOLE
     Route: 048
     Dates: start: 20241222, end: 202501
  40. Human Granulocyte Colony-stimulating Factor [Concomitant]
     Route: 058
     Dates: start: 20241206, end: 20241209
  41. Human Granulocyte Colony-stimulating Factor [Concomitant]
     Route: 058
     Dates: start: 20241211, end: 20241215

REACTIONS (2)
  - Pneumocystis jirovecii pneumonia [Recovered/Resolved]
  - Upper respiratory tract infection [Recovered/Resolved]

NARRATIVE: CASE EVENT DATE: 20241204
